FAERS Safety Report 12520239 (Version 1)
Quarter: 2016Q2

REPORT INFORMATION
  Report Type: Spontaneous
  Country: US (occurrence: US)
  Receive Date: 20160630
  Receipt Date: 20160630
  Transmission Date: 20160815
  Serious: Yes (Hospitalization, Other)
  Sender: FDA-Public Use
  Company Number: US-GLAXOSMITHKLINE-US2016091975

PATIENT
  Sex: Female

DRUGS (4)
  1. VENTOLIN HFA [Suspect]
     Active Substance: ALBUTEROL SULFATE
     Indication: CHRONIC OBSTRUCTIVE PULMONARY DISEASE
     Dosage: 2 PUFF(S), PRN
     Route: 055
  2. LAMICTAL [Concomitant]
     Active Substance: LAMOTRIGINE
  3. ADVAIR DISKUS [Suspect]
     Active Substance: FLUTICASONE PROPIONATE\SALMETEROL XINAFOATE
     Indication: CHRONIC OBSTRUCTIVE PULMONARY DISEASE
     Dosage: 1 PUFF(S), BID
     Route: 055
     Dates: start: 2011
  4. LEXAPRO [Concomitant]
     Active Substance: ESCITALOPRAM OXALATE

REACTIONS (14)
  - Psychomotor hyperactivity [Unknown]
  - Hypotension [Unknown]
  - Tremor [Unknown]
  - Drug dose omission [Recovered/Resolved]
  - Lymphoedema [Unknown]
  - Pleural effusion [Recovered/Resolved]
  - Anxiety [Unknown]
  - Pancreatic carcinoma [Recovered/Resolved]
  - Dehydration [Unknown]
  - Loss of consciousness [Recovered/Resolved]
  - Intentional product misuse [Recovered/Resolved]
  - Pancreaticoduodenectomy [Not Recovered/Not Resolved]
  - Gastrointestinal disorder [Recovered/Resolved]
  - Device use error [Recovered/Resolved]

NARRATIVE: CASE EVENT DATE: 2011
